FAERS Safety Report 17510638 (Version 1)
Quarter: 2020Q1

REPORT INFORMATION
  Report Type: Spontaneous
  Country: US (occurrence: US)
  Receive Date: 20200226
  Receipt Date: 20200226
  Transmission Date: 20200409
  Serious: Yes (Hospitalization)
  Sender: FDA-Public Use
  Company Number: None

PATIENT
  Age: 59 Year
  Sex: Female

DRUGS (19)
  1. FENTANYL. [Concomitant]
     Active Substance: FENTANYL
  2. PROCHLORPER [Concomitant]
  3. AMOX/K CLAV [Concomitant]
     Active Substance: AMOXICILLIN\CLAVULANATE POTASSIUM
  4. AZITHROMYCIN ANHYDROUS. [Concomitant]
     Active Substance: AZITHROMYCIN ANHYDROUS
  5. LORAZEPAM. [Concomitant]
     Active Substance: LORAZEPAM
  6. OXYCODONE [Concomitant]
     Active Substance: OXYCODONE
  7. EVEROLIMUS 5MG (7 TAB/CARD) [Suspect]
     Active Substance: EVEROLIMUS
     Indication: BENIGN RENAL NEOPLASM
     Route: 048
  8. METFORMIN [Concomitant]
     Active Substance: METFORMIN HYDROCHLORIDE
  9. LIDOCAINE. [Concomitant]
     Active Substance: LIDOCAINE
  10. NYSTATIN. [Concomitant]
     Active Substance: NYSTATIN
  11. TRUE METRIX KIT AIR [Concomitant]
  12. PANTOPRAZOLE [Concomitant]
     Active Substance: PANTOPRAZOLE
  13. PREDNISOLONE. [Concomitant]
     Active Substance: PREDNISOLONE
  14. FUROSEMIDE. [Concomitant]
     Active Substance: FUROSEMIDE
  15. ELIQUIS [Concomitant]
     Active Substance: APIXABAN
  16. PREDNISONE. [Concomitant]
     Active Substance: PREDNISONE
  17. TRUE METRIX TES GLUCOSE [Concomitant]
  18. VIRTUSSIN AC [Concomitant]
     Active Substance: CODEINE PHOSPHATE\GUAIFENESIN
  19. ONDANSETRON [Concomitant]
     Active Substance: ONDANSETRON

REACTIONS (3)
  - Nausea [None]
  - Pulmonary oedema [None]
  - Neoplasm [None]

NARRATIVE: CASE EVENT DATE: 20200101
